FAERS Safety Report 6302979-X (Version None)
Quarter: 2009Q3

REPORT INFORMATION
  Report Type: 
  Country: None (occurrence: None)
  Receive Date: 20090810
  Receipt Date: 20090728
  Transmission Date: 20100115
  Serious: Yes (Hospitalization)
  Sender: FDA-Public Use
  Company Number: JP-GENENTECH-288159

PATIENT
  Sex: Female

DRUGS (2)
  1. BEVACIZUMAB [Suspect]
     Indication: BREAST CANCER
     Dosage: 483 MG, Q2W
     Route: 042
     Dates: start: 20080528, end: 20090611
  2. PACLITAXEL [Suspect]
     Indication: BREAST CANCER
     Dosage: 131 MG, 1/WEEK
     Route: 042
     Dates: start: 20080528

REACTIONS (1)
  - ANAEMIA [None]
